FAERS Safety Report 4539594-4 (Version None)
Quarter: 2004Q4

REPORT INFORMATION
  Report Type: 
  Country: None (occurrence: None)
  Receive Date: 20041228
  Receipt Date: 20041209
  Transmission Date: 20050328
  Serious: Yes (Other)
  Sender: FDA-Public Use
  Company Number: PHNU2004DE04137

PATIENT
  Age: 60 Year
  Sex: Male
  Weight: 78 kg

DRUGS (5)
  1. SANDIMMUNE [Suspect]
     Indication: PSORIATIC ARTHROPATHY
     Dosage: 100 MG, QD
     Route: 048
     Dates: start: 19990813, end: 19990818
  2. METHOTREXATE [Concomitant]
     Indication: PSORIATIC ARTHROPATHY
     Dates: start: 19990301
  3. DECORTIN-H [Concomitant]
     Dosage: 15 MG, QD
     Dates: start: 19990101
  4. VALORON [Concomitant]
     Route: 048
  5. ROXIT [Concomitant]

REACTIONS (3)
  - DIABETES MELLITUS [None]
  - PARAESTHESIA [None]
  - PERIPHERAL SENSORY NEUROPATHY [None]
